FAERS Safety Report 22203522 (Version 1)
Quarter: 2023Q2

REPORT INFORMATION
  Report Type: Spontaneous
  Country: JP (occurrence: JP)
  Receive Date: 20230412
  Receipt Date: 20230412
  Transmission Date: 20230721
  Serious: Yes (Life-Threatening, Hospitalization, Other)
  Sender: FDA-Public Use
  Company Number: JP-BAYER-2023A014269

PATIENT
  Age: 63 Year
  Sex: Male
  Weight: 62 kg

DRUGS (5)
  1. XOFIGO [Suspect]
     Active Substance: RADIUM RA-223 DICHLORIDE
     Indication: Metastases to bone
     Dosage: 55KBQ/KG, ONCE
     Dates: start: 20220822, end: 20220822
  2. XOFIGO [Suspect]
     Active Substance: RADIUM RA-223 DICHLORIDE
     Indication: Hormone-refractory prostate cancer
     Dosage: 55KBQ/KG, ONCE
     Dates: start: 20220927, end: 20220927
  3. XOFIGO [Suspect]
     Active Substance: RADIUM RA-223 DICHLORIDE
     Indication: Metastases to bone
     Dosage: 55KBQ/KG, ONCE
     Dates: start: 20221024, end: 20221024
  4. XOFIGO [Suspect]
     Active Substance: RADIUM RA-223 DICHLORIDE
     Indication: Metastases to bone
     Dosage: 55KBQ/KG, ONCE
     Dates: start: 20221205, end: 20221205
  5. DOCETAXEL [Suspect]
     Active Substance: DOCETAXEL

REACTIONS (2)
  - Pancytopenia [Recovered/Resolved]
  - Myelosuppression [None]
